FAERS Safety Report 8814596 (Version 1)
Quarter: 2012Q4

REPORT INFORMATION
  Report Type: Spontaneous
  Country: US (occurrence: None)
  Receive Date: 20120926
  Receipt Date: 20120926
  Transmission Date: 20130627
  Serious: Yes (Hospitalization)
  Sender: FDA-Public Use
  Company Number: COM-000591

PATIENT
  Age: 16 Year
  Sex: Male
  Weight: 83.92 kg

DRUGS (1)
  1. DIPHENHYDRAMINE [Suspect]
     Indication: DRUG ABUSE
     Dosage: Took the entire bottle ovet two nights (32 count)
     Dates: start: 20120909, end: 20120910

REACTIONS (5)
  - Hallucination [None]
  - Anger [None]
  - Heart rate increased [None]
  - Hypertension [None]
  - Tremor [None]
